FAERS Safety Report 24690170 (Version 1)
Quarter: 2024Q4

REPORT INFORMATION
  Report Type: Spontaneous
  Country: US (occurrence: None)
  Receive Date: 20241202
  Receipt Date: 20241202
  Transmission Date: 20250115
  Serious: Yes (Hospitalization)
  Sender: Public
  Company Number: None

PATIENT
  Sex: Female

DRUGS (4)
  1. WINREVAIR [Suspect]
     Active Substance: SOTATERCEPT-CSRK
  2. VELETRI [Concomitant]
     Active Substance: EPOPROSTENOL
     Dosage: OTHER FREQUENCY : EVERY 21 DAYS ;?
     Route: 042
  3. SODIUM CHLOR (100ML/BAG) [Concomitant]
  4. OPSUMIT [Concomitant]
     Active Substance: MACITENTAN

REACTIONS (1)
  - Gastrointestinal haemorrhage [None]
